FAERS Safety Report 4436814-1 (Version None)
Quarter: 2004Q3

REPORT INFORMATION
  Report Type: 
  Country: None (occurrence: None)
  Receive Date: 20040827
  Receipt Date: 20040820
  Transmission Date: 20050211
  Serious: Yes (Other)
  Sender: FDA-Public Use
  Company Number: 002505

PATIENT
  Age: 54 Year
  Sex: Female

DRUGS (4)
  1. MEDROXYPROGESTERONE ACETATE [Suspect]
     Dates: start: 19840101, end: 19970101
  2. PROVERA [Suspect]
     Dates: start: 19840101, end: 19970101
  3. ESTRADERM [Suspect]
     Dates: start: 19920101, end: 19970101
  4. MEDROXYPROGESTERONE ACETATE [Suspect]
     Dates: start: 19970101, end: 20001101

REACTIONS (1)
  - BREAST CANCER [None]
